FAERS Safety Report 7834172-3 (Version None)
Quarter: 2011Q4

REPORT INFORMATION
  Report Type: 
  Country: None (occurrence: None)
  Receive Date: 20111024
  Receipt Date: 20111013
  Transmission Date: 20120403
  Serious: Yes (Other)
  Sender: FDA-Public Use
  Company Number: PHHY2011AR90909

PATIENT
  Age: 83 Year
  Sex: Female

DRUGS (2)
  1. RASILEZ [Suspect]
     Indication: HYPERTENSION
     Dosage: 1 DF, QD
     Dates: start: 20110401
  2. VAXIGRIP [Concomitant]
     Indication: INFLUENZA

REACTIONS (2)
  - HYPOTENSION [None]
  - BLOOD GLUCOSE DECREASED [None]
